FAERS Safety Report 8787970 (Version 1)
Quarter: 2012Q4

REPORT INFORMATION
  Report Type: 
  Country: US (occurrence: US)
  Receive Date: 20120914
  Receipt Date: 20120914
  Transmission Date: 20130627
  Serious: Yes (Other)
  Sender: FDA-Public Use
  Company Number: US-PFIZER INC-2012226315

PATIENT
  Sex: Female

DRUGS (8)
  1. ADVIL [Suspect]
     Indication: MUSCULOSKELETAL PAIN
     Dosage: UNK, as needed
     Route: 048
     Dates: start: 201209
  2. ACETYLSALICYLIC ACID [Concomitant]
     Indication: ANTICOAGULANT THERAPY
     Dosage: 81 mg, daily
     Dates: start: 2005
  3. CRESTOR [Concomitant]
     Indication: BLOOD CHOLESTEROL ABNORMAL
     Dosage: 10 mg,daily
  4. DIOVAN HCT [Concomitant]
     Indication: CARDIAC DISORDER
     Dosage: 320/125 mg daily
  5. METFORMIN [Concomitant]
     Indication: DIABETES MELLITUS
     Dosage: 500 mg,daily
  6. FISH OIL [Concomitant]
     Indication: SUPPLEMENTATION THERAPY
     Dosage: 1000 mg, 2x/day
  7. VITAMIN C [Concomitant]
     Indication: SUPPLEMENTATION THERAPY
     Dosage: 500 mg,daily
  8. VITAMIN B [Concomitant]
     Indication: SUPPLEMENTATION THERAPY
     Dosage: 50000 IU, weekly

REACTIONS (4)
  - Cardiac flutter [Recovered/Resolved]
  - Headache [Recovered/Resolved]
  - Eye pain [Recovered/Resolved]
  - Blood pressure abnormal [Recovered/Resolved]
